FAERS Safety Report 7515785-5 (Version None)
Quarter: 2011Q2

REPORT INFORMATION
  Report Type: 
  Country: None (occurrence: None)
  Receive Date: 20110601
  Receipt Date: 20110527
  Transmission Date: 20111010
  Serious: Yes (Disabling)
  Sender: FDA-Public Use
  Company Number: GB-PFIZER INC-2011116203

PATIENT
  Age: 38 Year
  Sex: Female
  Weight: 65 kg

DRUGS (1)
  1. PREGABALIN [Suspect]
     Indication: PAIN
     Dosage: 200 MG, 3X/DAY
     Route: 048
     Dates: start: 20101101, end: 20110221

REACTIONS (5)
  - ABDOMINAL DISTENSION [None]
  - TREMOR [None]
  - DECREASED APPETITE [None]
  - WITHDRAWAL SYNDROME [None]
  - DISSOCIATION [None]
